FAERS Safety Report 5619919-9 (Version None)
Quarter: 2008Q1

REPORT INFORMATION
  Report Type: 
  Country: None (occurrence: None)
  Receive Date: 20080208
  Receipt Date: 20070628
  Transmission Date: 20080703
  Serious: No
  Sender: FDA-Public Use
  Company Number: US-ABBOTT-07P-163-0373416-00

PATIENT
  Sex: Female
  Weight: 100 kg

DRUGS (4)
  1. VICODIN [Suspect]
     Indication: PAIN
     Route: 048
     Dates: start: 19970101, end: 20070617
  2. ATENOLOL [Concomitant]
     Indication: HYPERTENSION
     Route: 048
  3. LOVASTATIN [Concomitant]
     Indication: BLOOD CHOLESTEROL INCREASED
     Route: 048
  4. VICODIN [Concomitant]
     Indication: DRUG USE FOR UNKNOWN INDICATION

REACTIONS (1)
  - VOMITING [None]
